FAERS Safety Report 19352303 (Version 3)
Quarter: 2021Q2

REPORT INFORMATION
  Report Type: Spontaneous
  Country: US (occurrence: US)
  Receive Date: 20210601
  Receipt Date: 20210614
  Transmission Date: 20210717
  Serious: No
  Sender: FDA-Public Use
  Company Number: US-AMGEN-USASP2021081944

PATIENT
  Age: 77 Year
  Sex: Male
  Weight: 70.3 kg

DRUGS (1)
  1. REPATHA [Suspect]
     Active Substance: EVOLOCUMAB
     Indication: BLOOD TRIGLYCERIDES ABNORMAL
     Dosage: 140 MILLIGRAM
     Route: 065

REACTIONS (3)
  - Wrong technique in product usage process [Unknown]
  - Dizziness [Recovered/Resolved]
  - Accidental exposure to product [Unknown]

NARRATIVE: CASE EVENT DATE: 20210521
